FAERS Safety Report 11071364 (Version 1)
Quarter: 2015Q2

REPORT INFORMATION
  Report Type: Spontaneous
  Country: US (occurrence: None)
  Receive Date: 20150427
  Receipt Date: 20150427
  Transmission Date: 20150821
  Serious: Yes (Hospitalization)
  Sender: FDA-Public Use
  Company Number: None

PATIENT
  Age: 33 Year
  Sex: Male
  Weight: 65 kg

DRUGS (2)
  1. RISPERIDONE. [Suspect]
     Active Substance: RISPERIDONE
     Indication: SCHIZOPHRENIA
     Route: 048
  2. FLAKKA [Suspect]
     Active Substance: .ALPHA.-PYRROLIDINOPENTIOPHENONE
     Indication: SUBSTANCE USE
     Route: 055

REACTIONS (7)
  - Cellulitis of male external genital organ [None]
  - Pyrexia [None]
  - Rhabdomyolysis [None]
  - Leukocytosis [None]
  - Drug ineffective [None]
  - Heart injury [None]
  - Penile haematoma [None]
